FAERS Safety Report 14429583 (Version 1)
Quarter: 2018Q1

REPORT INFORMATION
  Report Type: Report from Study
  Country: US (occurrence: US)
  Receive Date: 20180123
  Receipt Date: 20180123
  Transmission Date: 20180509
  Serious: No
  Sender: FDA-Public Use
  Company Number: US-AMGEN-USASL2017180783

PATIENT
  Age: 62 Year
  Sex: Female

DRUGS (1)
  1. REPATHA [Suspect]
     Active Substance: EVOLOCUMAB
     Indication: PRODUCT USED FOR UNKNOWN INDICATION
     Dosage: 140 MG, UNK
     Route: 065

REACTIONS (6)
  - Myalgia [Unknown]
  - Oropharyngeal pain [Unknown]
  - Vomiting [Unknown]
  - Diarrhoea [Unknown]
  - Arthralgia [Unknown]
  - Influenza like illness [Unknown]
